FAERS Safety Report 21505334 (Version 2)
Quarter: 2022Q4

REPORT INFORMATION
  Report Type: Spontaneous
  Country: CH (occurrence: CH)
  Receive Date: 20221026
  Receipt Date: 20221202
  Transmission Date: 20230113
  Serious: Yes (Death)
  Sender: FDA-Public Use
  Company Number: CH-NOVOPROD-970981

PATIENT
  Age: 80 Year
  Sex: Male
  Weight: 95.5 kg

DRUGS (12)
  1. RYBELSUS [Suspect]
     Active Substance: SEMAGLUTIDE
     Indication: Type 2 diabetes mellitus
     Dosage: 3 MG
     Route: 048
     Dates: start: 20210216
  2. RYBELSUS [Suspect]
     Active Substance: SEMAGLUTIDE
     Dosage: 14 MG, QD
     Route: 048
     Dates: end: 20220809
  3. AMLODIPIN VALSARTAN BETA [Concomitant]
     Indication: Product used for unknown indication
     Dosage: 5/160MG (1 TABLET IN THE MORNING)
     Dates: start: 20220607
  4. JARDIANCE [Concomitant]
     Active Substance: EMPAGLIFLOZIN
     Indication: Type 2 diabetes mellitus
     Dosage: 10 MG (1 TABLET IN THE MORNING)
  5. SYSTANE (HYPROMELLOSE 2910 (4000 MPA.S)) [Concomitant]
     Active Substance: HYPROMELLOSE 2910 (4000 MPA.S)
     Indication: Product used for unknown indication
     Dosage: UNK (DROPS)
     Dates: start: 20121216
  6. TRESIBA [Suspect]
     Active Substance: INSULIN DEGLUDEC
     Indication: Product used for unknown indication
     Dosage: 26 IU, QD (IN THE MORNING)
     Dates: start: 20220607
  7. VITAMIN D3 [Concomitant]
     Active Substance: CHOLECALCIFEROL
     Indication: Vitamin D deficiency
     Dosage: 2 ML, QW
     Dates: start: 20210113
  8. METOPROLOL [Concomitant]
     Active Substance: METOPROLOL
     Indication: Cardiac disorder
     Dosage: 25 MG, QD (1 TABLET IN THE MORNING)
     Dates: start: 20210322
  9. XARELTO [Concomitant]
     Active Substance: RIVAROXABAN
     Indication: Product used for unknown indication
     Dosage: 20 MG, QD (1 TABLET IN THE MORNING WITH FOOD)
     Dates: start: 20220705
  10. DAFALGAN [Concomitant]
     Active Substance: ACETAMINOPHEN
     Indication: Product used for unknown indication
     Dosage: 1 G (RESERVE MEDICATION, MAXIMAL 4 TABLETS A DAY)
     Dates: start: 20211026
  11. ATORVASTATIN CALCIUM\EZETIMIBE [Concomitant]
     Active Substance: ATORVASTATIN CALCIUM\EZETIMIBE
     Indication: Product used for unknown indication
     Dosage: UNK
  12. MAGNESIUM DIASPORAL [MAGNESIUM CITRATE] [Concomitant]
     Indication: Muscle spasms
     Dosage: 300 MG (RESERVE MEDICATION, 1 PACKAGE IN THE EVENING)
     Dates: start: 20210803

REACTIONS (1)
  - Sudden cardiac death [Fatal]

NARRATIVE: CASE EVENT DATE: 20220809
